FAERS Safety Report 10540948 (Version 1)
Quarter: 2014Q4

REPORT INFORMATION
  Report Type: Spontaneous
  Country: US (occurrence: None)
  Receive Date: 20141023
  Receipt Date: 20141023
  Transmission Date: 20150529
  Serious: No
  Sender: FDA-Public Use
  Company Number: None

PATIENT
  Age: 80 Year
  Sex: Male
  Weight: 87.09 kg

DRUGS (1)
  1. COMBIGAN [Suspect]
     Active Substance: BRIMONIDINE TARTRATE\TIMOLOL MALEATE
     Indication: INTRAOCULAR PRESSURE TEST ABNORMAL
     Dosage: 1 DROP EACH EYE 2X / DAY, TWICE DAILY
     Dates: start: 20141007, end: 20141011

REACTIONS (3)
  - Product quality issue [None]
  - Skin striae [None]
  - Hypersensitivity [None]

NARRATIVE: CASE EVENT DATE: 20141010
